FAERS Safety Report 4561023-5 (Version None)
Quarter: 2005Q1

REPORT INFORMATION
  Report Type: 
  Country: None (occurrence: None)
  Receive Date: 20050126
  Receipt Date: 20040812
  Transmission Date: 20050727
  Serious: No
  Sender: FDA-Public Use
  Company Number: US-BRISTOL-MYERS SQUIBB COMPANY-12669321

PATIENT
  Age: 63 Year
  Sex: Male
  Weight: 84 kg

DRUGS (3)
  1. GLUCOPHAGE [Suspect]
     Indication: DIABETES MELLITUS
     Dosage: DURATION OF THERAPY:  ^FEW YEARS^. WAS ON GENERIC GLUCOPHAGE IN MAY-2004 FOR A MONTH.
     Route: 048
     Dates: end: 20040803
  2. FLOMAX [Concomitant]
  3. ALTACE [Concomitant]

REACTIONS (1)
  - ARTHRALGIA [None]
